FAERS Safety Report 7121852-0 (Version None)
Quarter: 2010Q4

REPORT INFORMATION
  Report Type: 
  Country: None (occurrence: None)
  Receive Date: 20101124
  Receipt Date: 20101118
  Transmission Date: 20110411
  Serious: Yes (Hospitalization)
  Sender: FDA-Public Use
  Company Number: DE-ROCHE-743397

PATIENT
  Age: 71 Year
  Sex: Male

DRUGS (2)
  1. AVASTIN [Suspect]
     Dosage: 5 APPLICATIONS IN COMBINATION WITH FLUOROURACIL, LAST APPLICATION ON 10 NOV 2010
     Route: 065
  2. FLUOROURACIL [Suspect]
     Dosage: 5 APPLICATIONS IN COMBINATION WITH BEVACIZUMAB, LAST APPLICATION ON 10 NOV 2010
     Route: 065

REACTIONS (3)
  - BLISTER [None]
  - DERMATITIS EXFOLIATIVE GENERALISED [None]
  - ERYTHEMA [None]
